FAERS Safety Report 4300819-1 (Version None)
Quarter: 2004Q1

REPORT INFORMATION
  Report Type: 
  Country: None (occurrence: None)
  Receive Date: 20040219
  Receipt Date: 20040209
  Transmission Date: 20041129
  Serious: Yes (Hospitalization)
  Sender: FDA-Public Use
  Company Number: 2004AP00532

PATIENT
  Age: 68 Year
  Sex: Male
  Weight: 65 kg

DRUGS (32)
  1. DIPRIVAN [Suspect]
     Indication: GENERAL ANAESTHESIA
     Dosage: 20 ML/HR IV
     Route: 042
     Dates: start: 20040120, end: 20040120
  2. DIPRIVAN [Suspect]
     Indication: SEDATION
     Dosage: 20 ML/HR IV
     Route: 042
     Dates: start: 20040120, end: 20040120
  3. DIPRIVAN [Suspect]
     Indication: GENERAL ANAESTHESIA
     Dosage: 17 ML/HR IV
     Route: 042
     Dates: start: 20040122, end: 20040129
  4. DIPRIVAN [Suspect]
     Indication: SEDATION
     Dosage: 17 ML/HR IV
     Route: 042
     Dates: start: 20040122, end: 20040129
  5. DIPRIVAN [Suspect]
     Indication: GENERAL ANAESTHESIA
     Dosage: 4.5 MG/KG/HR IV
     Route: 042
     Dates: start: 20040120, end: 20040121
  6. DIPRIVAN [Suspect]
     Indication: SEDATION
     Dosage: 4.5 MG/KG/HR IV
     Route: 042
     Dates: start: 20040120, end: 20040121
  7. MORPHINE [Concomitant]
  8. FENTANEST [Concomitant]
  9. VECURONIUM BROMIDE [Concomitant]
  10. EPHEDRINE [Concomitant]
  11. ATROPINE SULFATE [Concomitant]
  12. CEFOTIAM HYDROCHLORIDE [Concomitant]
  13. MIDAZOLAM HCL [Concomitant]
  14. MIRACLID [Concomitant]
  15. PERDIPINE [Concomitant]
  16. SOLU-MEROL [Concomitant]
  17. XYLOCAINE [Concomitant]
  18. CALCICOL [Concomitant]
  19. LASIX [Concomitant]
  20. MEYLON [Concomitant]
  21. NEOPHYLLIN [Concomitant]
  22. METHOXSALEN [Concomitant]
  23. PROTAMINE SULFATE [Concomitant]
  24. INOVAN [Concomitant]
  25. DOBUTAMINE HCL [Concomitant]
  26. HERBESER   DELTA [Concomitant]
  27. PROSTANDIN [Concomitant]
  28. HALOPERIDOL [Concomitant]
  29. XYLOCAINE [Concomitant]
  30. ANAPEINE [Concomitant]
  31. MERCAINE [Concomitant]
  32. CARBOCAINE [Concomitant]

REACTIONS (3)
  - ANXIETY [None]
  - DELAYED RECOVERY FROM ANAESTHESIA [None]
  - DEPRESSED LEVEL OF CONSCIOUSNESS [None]
